FAERS Safety Report 5056437-3 (Version None)
Quarter: 2006Q3

REPORT INFORMATION
  Report Type: 
  Country: None (occurrence: None)
  Receive Date: 20060720
  Receipt Date: 20060710
  Transmission Date: 20061208
  Serious: Yes (Other)
  Sender: FDA-Public Use
  Company Number: US-SANOFI-SYNTHELABO-A03200604404

PATIENT
  Age: 71 Year
  Sex: Female

DRUGS (6)
  1. LIPITOR [Concomitant]
     Dosage: UNK
     Route: 048
  2. ATENOLOL [Concomitant]
     Dosage: UNK
     Route: 048
  3. ACETYLSALICYLIC ACID SRT [Suspect]
     Indication: PROPHYLAXIS
     Route: 048
     Dates: start: 19950101, end: 20060601
  4. ZETIA [Concomitant]
     Dosage: UNK
     Route: 048
  5. PLAVIX [Suspect]
     Indication: MYOCARDIAL INFARCTION
     Route: 048
     Dates: start: 19990101, end: 20060607
  6. NORVASC [Concomitant]
     Dosage: UNK
     Route: 048

REACTIONS (2)
  - CONTUSION [None]
  - LUNG NEOPLASM MALIGNANT [None]
